FAERS Safety Report 9393874 (Version 3)
Quarter: 2013Q3

REPORT INFORMATION
  Report Type: Spontaneous
  Country: ES (occurrence: None)
  Receive Date: 20130705
  Receipt Date: 20130805
  Transmission Date: 20140515
  Serious: Yes (Hospitalization)
  Sender: FDA-Public Use
  Company Number: SYM-2013-05319

PATIENT
  Age: 67 Year
  Sex: Female

DRUGS (3)
  1. FLUOROURACIL (FLUOROURACIL) (FLUOROURACIL) [Suspect]
     Indication: BREAST CANCER
     Route: 040
     Dates: start: 20010301, end: 20010301
  2. DOXORUBICIN (DOXORUBICIN) (DOXORUBICIN) [Suspect]
     Indication: BREAST CANCER
     Route: 040
     Dates: start: 20010301, end: 20010301
  3. CYCLOPHOSPHAMIDE [Suspect]
     Indication: BREAST CANCER
     Route: 040
     Dates: start: 20010301, end: 20010301

REACTIONS (3)
  - Stomatitis [None]
  - Lung infection [None]
  - Neutropenia [None]
